FAERS Safety Report 4832889-6 (Version None)
Quarter: 2005Q4

REPORT INFORMATION
  Report Type: 
  Country: None (occurrence: None)
  Receive Date: 20051121
  Receipt Date: 20051108
  Transmission Date: 20060501
  Serious: Yes (Death, Hospitalization)
  Sender: FDA-Public Use
  Company Number: FR-GLAXOSMITHKLINE-B0400051A

PATIENT
  Age: 39 Year
  Sex: Male
  Weight: 83 kg

DRUGS (5)
  1. EPIVIR [Suspect]
     Indication: HIV INFECTION
     Dosage: 300MG PER DAY
     Route: 048
     Dates: end: 20051014
  2. FOSCAVIR [Suspect]
     Route: 042
     Dates: start: 20051012, end: 20051017
  3. KALETRA [Suspect]
     Indication: HIV INFECTION
     Dosage: 6UNIT PER DAY
     Route: 048
     Dates: end: 20051016
  4. FUZEON [Suspect]
     Indication: HIV INFECTION
     Dosage: 2UNIT PER DAY
     Route: 058
     Dates: end: 20051017
  5. DEPAKENE [Concomitant]
     Route: 048

REACTIONS (5)
  - ATRIAL FIBRILLATION [None]
  - GENERAL PHYSICAL HEALTH DETERIORATION [None]
  - LACTIC ACIDOSIS [None]
  - MULTI-ORGAN FAILURE [None]
  - RENAL FAILURE [None]
